FAERS Safety Report 7211498-8 (Version None)
Quarter: 2011Q1

REPORT INFORMATION
  Report Type: 
  Country: None (occurrence: None)
  Receive Date: 20110105
  Receipt Date: 20110103
  Transmission Date: 20110831
  Serious: Yes (Other)
  Sender: FDA-Public Use
  Company Number: GT-PFIZER INC-2011001388

PATIENT
  Age: 54 Year
  Sex: Male

DRUGS (2)
  1. PANTECTA [Suspect]
     Indication: GASTRITIS
     Dosage: 40 MG, UNK
  2. PANTECTA [Suspect]
     Indication: GASTROOESOPHAGEAL REFLUX DISEASE

REACTIONS (1)
  - PENILE ULCERATION [None]
